FAERS Safety Report 9312730 (Version 1)
Quarter: 2013Q2

REPORT INFORMATION
  Report Type: Spontaneous
  Country: CA (occurrence: CA)
  Receive Date: 20130528
  Receipt Date: 20130528
  Transmission Date: 20140414
  Serious: Yes (Hospitalization)
  Sender: FDA-Public Use
  Company Number: CA-PFIZER INC-2013160825

PATIENT
  Age: 84 Year
  Sex: Male

DRUGS (3)
  1. MOTRIN IB [Suspect]
     Dosage: 1 DF, UNK
     Route: 048
  2. ASA [Concomitant]
     Dosage: UNK
     Route: 065
  3. ASPIRIN [Concomitant]
     Dosage: UNK
     Route: 065

REACTIONS (3)
  - Expired drug administered [Recovered/Resolved]
  - Chest discomfort [Recovered/Resolved]
  - Chest pain [Recovered/Resolved]
